FAERS Safety Report 4914216-9 (Version None)
Quarter: 2006Q1

REPORT INFORMATION
  Report Type: 
  Country: None (occurrence: None)
  Receive Date: 20060213
  Receipt Date: 20060206
  Transmission Date: 20060701
  Serious: Yes (Other)
  Sender: FDA-Public Use
  Company Number: 200610171BYL

PATIENT
  Age: 34 Year
  Sex: Female

DRUGS (1)
  1. AVELOX [Suspect]
     Indication: ACUTE SINUSITIS
     Dosage: 400 MG, QD, ORAL
     Route: 048
     Dates: start: 20060204

REACTIONS (3)
  - DYSPNOEA [None]
  - EXOPHTHALMOS [None]
  - FLUSHING [None]
